FAERS Safety Report 4692314-5 (Version None)
Quarter: 2005Q2

REPORT INFORMATION
  Report Type: 
  Country: None (occurrence: None)
  Receive Date: 20050616
  Receipt Date: 20050603
  Transmission Date: 20051028
  Serious: Yes (Life-Threatening, Hospitalization)
  Sender: FDA-Public Use
  Company Number: MK200506-0046-1

PATIENT
  Age: 70 Year
  Sex: Female
  Weight: 20.4119 kg

DRUGS (8)
  1. OPTIRAY 100ML SYR [Suspect]
     Indication: COMPUTERISED TOMOGRAM
     Dosage: ONE TIME, IV
     Route: 042
     Dates: start: 20050509, end: 20050509
  2. BERAPROST SODIUM [Concomitant]
  3. TEPRENONE [Concomitant]
  4. DILTIAZEM HYDROCHLORIDE [Concomitant]
  5. CLINIDIPINE [Concomitant]
  6. ISOSORBIDE DINITRATE [Concomitant]
  7. BROTIZOLAM [Concomitant]
  8. L-ASPARTATE POTASSIUM [Concomitant]

REACTIONS (3)
  - DEPRESSED LEVEL OF CONSCIOUSNESS [None]
  - RESPIRATORY DEPRESSION [None]
  - SHOCK [None]
